FAERS Safety Report 5051465-6 (Version None)
Quarter: 2006Q3

REPORT INFORMATION
  Report Type: 
  Country: None (occurrence: None)
  Receive Date: 20060714
  Receipt Date: 20060418
  Transmission Date: 20061208
  Serious: Yes (Hospitalization)
  Sender: FDA-Public Use
  Company Number: 2006AP01886

PATIENT
  Age: 22947 Day
  Sex: Male
  Weight: 61 kg

DRUGS (3)
  1. CRESTOR [Suspect]
     Indication: HYPERCHOLESTEROLAEMIA
     Route: 048
     Dates: start: 20060111, end: 20060411
  2. CYANAMIDE [Concomitant]
     Indication: ALCOHOL POISONING
     Route: 048
  3. CERCINE [Concomitant]
     Indication: ALCOHOL POISONING
     Route: 048

REACTIONS (3)
  - ALCOHOLISM [None]
  - CONFUSIONAL STATE [None]
  - DISEASE RECURRENCE [None]
